FAERS Safety Report 8677207 (Version 2)
Quarter: 2012Q4

REPORT INFORMATION
  Report Type: 
  Country: US (occurrence: US)
  Receive Date: 20120723
  Receipt Date: 20120828
  Transmission Date: 20130627
  Serious: No
  Sender: FDA-Public Use
  Company Number: US-JNJFOC-20120705914

PATIENT
  Age: 31 None
  Sex: Female
  Weight: 49.44 kg

DRUGS (7)
  1. FENTANYL CITRATE [Suspect]
     Indication: ARTHRITIS
     Dosage: 2004 or 2005
     Route: 062
  2. FENTANYL CITRATE [Suspect]
     Indication: FIBROMYALGIA
     Dosage: 2004 or 2005
     Route: 062
  3. DURAGESIC [Suspect]
     Indication: FIBROMYALGIA
     Route: 062
     Dates: start: 2012
  4. FENTANYL [Suspect]
     Indication: ARTHRITIS
     Route: 062
  5. FENTANYL TRANSDERMAL SYSTEM [Suspect]
     Indication: ARTHRITIS
     Route: 062
     Dates: start: 2012, end: 2012
  6. SYNTHROID [Concomitant]
     Indication: THYROID DISORDER
     Route: 048
     Dates: start: 2002
  7. PERCOCET [Concomitant]
     Indication: BREAKTHROUGH PAIN
     Route: 048

REACTIONS (12)
  - Application site pustules [Recovered/Resolved]
  - Hormone level abnormal [Unknown]
  - Abnormal loss of weight [Not Recovered/Not Resolved]
  - Exposure during pregnancy [Recovered/Resolved]
  - Application site erosion [Not Recovered/Not Resolved]
  - Product quality issue [Unknown]
  - Hypersensitivity [Not Recovered/Not Resolved]
  - Adverse event [Not Recovered/Not Resolved]
  - Skin burning sensation [Recovered/Resolved]
  - Application site photosensitivity reaction [Recovered/Resolved]
  - Drug ineffective [Not Recovered/Not Resolved]
  - Wrong technique in drug usage process [Unknown]
